FAERS Safety Report 25863026 (Version 1)
Quarter: 2025Q3

REPORT INFORMATION
  Report Type: Spontaneous
  Country: US (occurrence: US)
  Receive Date: 20250930
  Receipt Date: 20250930
  Transmission Date: 20251020
  Serious: Yes (Hospitalization, Other)
  Sender: AUROBINDO
  Company Number: US-AUROBINDO-AUR-APL-2025-048453

PATIENT
  Age: 23 Year
  Sex: Female

DRUGS (7)
  1. CLONIDINE [Suspect]
     Active Substance: CLONIDINE
     Indication: Teratoma
     Route: 065
  2. GABAPENTIN [Suspect]
     Active Substance: GABAPENTIN
     Indication: Teratoma
     Route: 065
  3. HUMAN IMMUNOGLOBULIN G [Suspect]
     Active Substance: HUMAN IMMUNOGLOBULIN G
     Indication: Teratoma
     Route: 042
  4. RITUXIMAB [Suspect]
     Active Substance: RITUXIMAB
     Indication: Teratoma
     Route: 065
  5. LEVETIRACETAM [Concomitant]
     Active Substance: LEVETIRACETAM
     Indication: Status epilepticus
     Route: 065
  6. LACOSAMIDE [Concomitant]
     Active Substance: LACOSAMIDE
     Indication: Status epilepticus
     Route: 065
  7. BORTEZOMIB [Concomitant]
     Active Substance: BORTEZOMIB
     Indication: Teratoma benign
     Route: 065

REACTIONS (1)
  - Drug ineffective [Unknown]
